FAERS Safety Report 5122461-5 (Version None)
Quarter: 2006Q4

REPORT INFORMATION
  Report Type: 
  Country: None (occurrence: None)
  Receive Date: 20061004
  Receipt Date: 20060927
  Transmission Date: 20070319
  Serious: Yes (Death)
  Sender: FDA-Public Use
  Company Number: 06-042

PATIENT
  Age: 54 Year
  Sex: Female

DRUGS (5)
  1. LORTAB [Suspect]
  2. ULTRAM [Suspect]
     Indication: MULTIPLE SCLEROSIS
  3. REBIF [Concomitant]
  4. LUNESTA [Concomitant]
  5. DEPAKOTE [Concomitant]

REACTIONS (2)
  - ACCIDENTAL OVERDOSE [None]
  - VOMITING [None]
